FAERS Safety Report 11374940 (Version 2)
Quarter: 2015Q3

REPORT INFORMATION
  Report Type: Report from Study
  Country: BR (occurrence: BR)
  Receive Date: 20150813
  Receipt Date: 20150828
  Transmission Date: 20151125
  Serious: Yes (Hospitalization, Other)
  Sender: FDA-Public Use
  Company Number: PHHY2015BR096483

PATIENT
  Age: 78 Year
  Sex: Male
  Weight: 86 kg

DRUGS (7)
  1. DIOVAN [Suspect]
     Active Substance: VALSARTAN
     Indication: HYPERTENSION
     Dosage: 1 DF, QD
     Route: 048
  2. CLOPIDOGREL [Concomitant]
     Active Substance: CLOPIDOGREL BISULFATE
     Indication: HYPERTENSION
     Dosage: 1 DF, QD
     Route: 048
     Dates: start: 201507
  3. EXELON [Concomitant]
     Active Substance: RIVASTIGMINE TARTRATE
     Indication: CEREBROVASCULAR ACCIDENT
     Dosage: 1 OT (PATCH) (5 CM), QD
     Route: 062
     Dates: start: 201507
  4. CEBRALAT [Concomitant]
     Active Substance: CILOSTAZOL
     Indication: HYPERTENSION
     Dosage: 2 DF, QD
     Route: 048
     Dates: start: 201507
  5. AMLODIPINE BESYLATE. [Suspect]
     Active Substance: AMLODIPINE BESYLATE
     Indication: DIZZINESS
     Dosage: 2.5 MG, QD
     Route: 048
     Dates: start: 201503, end: 201507
  6. TREZOR [Concomitant]
     Active Substance: ROSUVASTATIN CALCIUM
     Indication: CEREBROVASCULAR ACCIDENT
     Dosage: 1 DF, QD
     Route: 048
     Dates: start: 201507
  7. AMLODIPINE BESYLATE. [Suspect]
     Active Substance: AMLODIPINE BESYLATE
     Dosage: 5 MG, UNK
     Route: 048
     Dates: start: 201507

REACTIONS (9)
  - Cerebrovascular accident [Recovering/Resolving]
  - Blood pressure inadequately controlled [Recovered/Resolved]
  - Blood pressure decreased [Recovered/Resolved]
  - Wrong technique in product usage process [Unknown]
  - Feeding disorder [Recovering/Resolving]
  - Dysstasia [Not Recovered/Not Resolved]
  - Oral candidiasis [Recovered/Resolved]
  - Dysphagia [Recovering/Resolving]
  - Monoplegia [Not Recovered/Not Resolved]

NARRATIVE: CASE EVENT DATE: 201507
